FAERS Safety Report 4893642-0 (Version None)
Quarter: 2006Q1

REPORT INFORMATION
  Report Type: 
  Country: None (occurrence: None)
  Receive Date: 20060127
  Receipt Date: 20051215
  Transmission Date: 20060701
  Serious: Yes (Hospitalization)
  Sender: FDA-Public Use
  Company Number: JP-SANOFI-SYNTHELABO-A01200600455

PATIENT
  Sex: Male
  Weight: 59 kg

DRUGS (4)
  1. OXALIPLATIN [Suspect]
     Indication: RECTAL CANCER
     Route: 042
     Dates: start: 20051130, end: 20051130
  2. ISOVORIN [Suspect]
     Indication: RECTAL CANCER
     Route: 042
     Dates: start: 20051130, end: 20051130
  3. FLUOROURACIL [Suspect]
     Indication: RECTAL CANCER
     Route: 042
     Dates: start: 20051130, end: 20051130
  4. FLUOROURACIL [Suspect]
     Route: 042
     Dates: start: 20051130, end: 20051130

REACTIONS (3)
  - DYSARTHRIA [None]
  - MYOCLONUS [None]
  - PARAESTHESIA [None]
